FAERS Safety Report 5877853-3 (Version None)
Quarter: 2008Q3

REPORT INFORMATION
  Report Type: 
  Country: None (occurrence: None)
  Receive Date: 20080908
  Receipt Date: 20080908
  Transmission Date: 20090109
  Serious: Yes (Other)
  Sender: FDA-Public Use
  Company Number: None

PATIENT
  Sex: Male
  Weight: 68.0396 kg

DRUGS (1)
  1. ACT RESTORING ANTICAVITY FLUORIDE 0.05% CHATTEM, INC. [Suspect]
     Indication: DENTAL TREATMENT
     Dosage: 1 CAPFUL ONCE/DAY PO
     Route: 048
     Dates: start: 20080904, end: 20080904

REACTIONS (3)
  - HYPERSENSITIVITY [None]
  - PRURITUS [None]
  - URTICARIA [None]
